FAERS Safety Report 25610555 (Version 1)
Quarter: 2025Q3

REPORT INFORMATION
  Report Type: Report from Study
  Country: IL (occurrence: IL)
  Receive Date: 20250728
  Receipt Date: 20250728
  Transmission Date: 20251021
  Serious: Yes (Hospitalization)
  Sender: ABBVIE
  Company Number: IL-ABBVIE-6385251

PATIENT
  Age: 78 Year
  Sex: Male

DRUGS (2)
  1. FOSCARBIDOPA\FOSLEVODOPA [Suspect]
     Active Substance: FOSCARBIDOPA\FOSLEVODOPA
     Indication: Parkinson^s disease
     Route: 058
     Dates: start: 20250721
  2. TAMSULOSIN [Concomitant]
     Active Substance: TAMSULOSIN
     Indication: Prostatomegaly

REACTIONS (5)
  - Pyrexia [Unknown]
  - Mental disorder [Unknown]
  - Dyskinesia [Recovering/Resolving]
  - Inflammatory marker increased [Unknown]
  - On and off phenomenon [Unknown]

NARRATIVE: CASE EVENT DATE: 20250701
